FAERS Safety Report 18955514 (Version 1)
Quarter: 2021Q1

REPORT INFORMATION
  Report Type: Spontaneous
  Country: AU (occurrence: AU)
  Receive Date: 20210301
  Receipt Date: 20210301
  Transmission Date: 20210420
  Serious: Yes (Other)
  Sender: FDA-Public Use
  Company Number: AU-009507513-2103AUS000188

PATIENT
  Sex: Male

DRUGS (6)
  1. BIMATOPROST. [Suspect]
     Active Substance: BIMATOPROST
     Indication: PRODUCT USED FOR UNKNOWN INDICATION
     Dosage: UNK
     Route: 065
  2. SAFLUTAN [Concomitant]
     Active Substance: TAFLUPROST
  3. DORZOLAMIDE HYDROCHLORIDE. [Suspect]
     Active Substance: DORZOLAMIDE HYDROCHLORIDE
     Indication: PRODUCT USED FOR UNKNOWN INDICATION
     Dosage: UNK
     Route: 065
  4. XALATAN [Concomitant]
     Active Substance: LATANOPROST
  5. SPAN?K [Concomitant]
     Active Substance: POTASSIUM CHLORIDE
  6. DIAMOX SEQUELS [Concomitant]
     Active Substance: ACETAZOLAMIDE

REACTIONS (5)
  - Myopic chorioretinal degeneration [Unknown]
  - Optic disc disorder [Unknown]
  - Optic nerve cupping [Unknown]
  - Intraocular pressure increased [Unknown]
  - Inappropriate schedule of product administration [Unknown]
